FAERS Safety Report 16271426 (Version 2)
Quarter: 2019Q2

REPORT INFORMATION
  Report Type: Spontaneous
  Country: FR (occurrence: FR)
  Receive Date: 20190505
  Receipt Date: 20190619
  Transmission Date: 20190711
  Serious: Yes (Other)
  Sender: FDA-Public Use
  Company Number: FR-CONCORDIA PHARMACEUTICALS INC.-GSH201905-001296

PATIENT
  Age: 82 Year
  Sex: Male
  Weight: 72 kg

DRUGS (3)
  1. EUPHYTOSE [Concomitant]
     Active Substance: HERBALS
  2. ALFUZOSIN TABLET [Suspect]
     Active Substance: ALFUZOSIN
     Indication: PROSTATE CANCER
     Route: 065
     Dates: start: 20190210, end: 20190314
  3. CRATAEGUS EXTRACT [Concomitant]
     Active Substance: HAWTHORN LEAF WITH FLOWER

REACTIONS (7)
  - Chest pain [Unknown]
  - Dyspnoea [Recovering/Resolving]
  - Extrasystoles [Unknown]
  - Arrhythmia [Unknown]
  - Atrial fibrillation [Unknown]
  - Off label use [Unknown]
  - Pulse abnormal [Unknown]

NARRATIVE: CASE EVENT DATE: 201903
